FAERS Safety Report 10494116 (Version 1)
Quarter: 2014Q4

REPORT INFORMATION
  Report Type: Spontaneous
  Country: US (occurrence: None)
  Receive Date: 20141002
  Receipt Date: 20141002
  Transmission Date: 20150528
  Serious: Yes (Other)
  Sender: FDA-Public Use
  Company Number: None

PATIENT
  Age: 53 Year
  Sex: Male
  Weight: 106 kg

DRUGS (1)
  1. FENTANYL TRANSDERMAL SYSTEM [Suspect]
     Active Substance: FENTANYL
     Indication: PAIN MANAGEMENT
     Dosage: 1 PATCH, 1 EACH 48 HOURS, APPLIED TO A SURFACE, USUALLY THE SKIN
     Dates: start: 20140929, end: 20140930

REACTIONS (10)
  - Headache [None]
  - Unevaluable event [None]
  - Vomiting [None]
  - Confusional state [None]
  - Nasal congestion [None]
  - Cold sweat [None]
  - Pruritus [None]
  - Pain [None]
  - Dizziness [None]
  - Hyperhidrosis [None]

NARRATIVE: CASE EVENT DATE: 20140930
